FAERS Safety Report 22338915 (Version 1)
Quarter: 2023Q2

REPORT INFORMATION
  Report Type: Spontaneous
  Country: US (occurrence: None)
  Receive Date: 20230517
  Receipt Date: 20230517
  Transmission Date: 20230721
  Serious: No
  Sender: FDA-Public Use
  Company Number: None

PATIENT
  Age: 58 Year
  Sex: Male

DRUGS (1)
  1. EVEROLIMUS [Suspect]
     Active Substance: EVEROLIMUS
     Dosage: FREQUENCY : DAILY;?
     Route: 048

REACTIONS (6)
  - Diarrhoea [None]
  - Wheezing [None]
  - Rash [None]
  - Fatigue [None]
  - Swelling face [None]
  - Therapy interrupted [None]

NARRATIVE: CASE EVENT DATE: 20230503
